FAERS Safety Report 24532463 (Version 2)
Quarter: 2024Q4

REPORT INFORMATION
  Report Type: Spontaneous
  Country: US (occurrence: US)
  Receive Date: 20241022
  Receipt Date: 20241101
  Transmission Date: 20250115
  Serious: Yes (Hospitalization)
  Sender: TEVA
  Company Number: US-TEVA-VS-3255302

PATIENT
  Age: 29 Year
  Sex: Female

DRUGS (2)
  1. EMTRICITABINE\TENOFOVIR [Suspect]
     Active Substance: EMTRICITABINE\TENOFOVIR
     Indication: HIV infection
     Route: 065
  2. DOLUTEGRAVIR [Suspect]
     Active Substance: DOLUTEGRAVIR
     Indication: HIV infection
     Route: 065

REACTIONS (4)
  - Immune reconstitution inflammatory syndrome [Recovering/Resolving]
  - Mycobacterium avium complex infection [Recovering/Resolving]
  - Pneumonia [Recovering/Resolving]
  - Palisaded neutrophilic granulomatous dermatitis [Recovered/Resolved]
